FAERS Safety Report 5226871-7 (Version None)
Quarter: 2007Q1

REPORT INFORMATION
  Report Type: 
  Country: None (occurrence: None)
  Receive Date: 20070202
  Receipt Date: 20070123
  Transmission Date: 20070707
  Serious: Yes (Other)
  Sender: FDA-Public Use
  Company Number: CA-JNJFOC-20070106311

PATIENT
  Age: 79 Year
  Sex: Male

DRUGS (11)
  1. LEVAQUIN [Suspect]
     Indication: DRUG USE FOR UNKNOWN INDICATION
     Route: 048
  2. GLYBURIDE [Suspect]
     Indication: DRUG USE FOR UNKNOWN INDICATION
     Route: 048
  3. ACCUPRIL [Concomitant]
     Route: 065
  4. COLACE [Concomitant]
     Route: 065
  5. LOSEC [Concomitant]
     Route: 065
  6. MONOCOR [Concomitant]
     Route: 065
  7. OXYCODONE HCL [Concomitant]
     Route: 065
  8. OXYCONTIN [Concomitant]
     Route: 065
  9. PRAVASTATIN SODIUM [Concomitant]
     Route: 065
  10. RISPERDAL [Concomitant]
     Route: 065
  11. SERAX [Concomitant]
     Route: 065

REACTIONS (6)
  - HAEMOGLOBIN DECREASED [None]
  - HYPERKALAEMIA [None]
  - HYPOGLYCAEMIA [None]
  - HYPOPROTEINAEMIA [None]
  - LEUKOCYTOSIS [None]
  - PYREXIA [None]
